FAERS Safety Report 8855117 (Version 1)
Quarter: 2012Q4

REPORT INFORMATION
  Report Type: 
  Country: US (occurrence: US)
  Receive Date: 20121023
  Receipt Date: 20121023
  Transmission Date: 20130627
  Serious: No
  Sender: FDA-Public Use
  Company Number: US-VERTEX PHARMACEUTICAL INC.-2012-022937

PATIENT
  Sex: Female
  Weight: 52 kg

DRUGS (9)
  1. VX-950 [Suspect]
     Indication: HEPATITIS C
     Dosage: 750 mg, tid
     Route: 048
     Dates: start: 2012
  2. RIBASPHERE [Concomitant]
     Indication: HEPATITIS C
     Dosage: 400 mg, bid
     Dates: start: 2012
  3. PEGASYS [Concomitant]
     Indication: HEPATITIS C
     Dosage: 180 ?g, weekly
     Route: 058
     Dates: start: 2012
  4. PROTONIX [Concomitant]
     Dosage: 20 mg, qd
  5. AMBIEN [Concomitant]
     Dosage: 10 mg, HS
  6. CALCIUM MAGNESIUM ZINC [Concomitant]
     Dosage: UNK, qd
  7. LEVOTHYROXINE [Concomitant]
     Dosage: 100 ?g, UNK
  8. VITAMIN C                          /00008001/ [Concomitant]
     Dosage: 1000 mg, UNK
  9. VITAMIN D3 [Concomitant]
     Dosage: 1000 DF, UNK

REACTIONS (9)
  - Dyspnoea [Unknown]
  - Pyrexia [Unknown]
  - Hypoaesthesia [Unknown]
  - Cheilitis [Unknown]
  - Myalgia [Unknown]
  - Chills [Unknown]
  - Asthenia [Unknown]
  - Fatigue [Unknown]
  - Dysgeusia [Unknown]
